FAERS Safety Report 10204105 (Version 1)
Quarter: 2014Q2

REPORT INFORMATION
  Report Type: Spontaneous
  Country: US (occurrence: US)
  Receive Date: 20140529
  Receipt Date: 20140529
  Transmission Date: 20141212
  Serious: Yes (Other)
  Sender: FDA-Public Use
  Company Number: US-WATSON-2014-11299

PATIENT
  Age: 66 Year
  Sex: Male

DRUGS (10)
  1. ARIPIPRAZOLE (UNKNOWN) [Suspect]
     Indication: MAJOR DEPRESSION
     Dosage: 30 MG, DAILY
     Route: 065
  2. METHYLPHENIDATE HYDROCHLORIDE (WATSON LABORATORIES) [Suspect]
     Indication: MAJOR DEPRESSION
     Dosage: 10 MG, BID
     Route: 065
  3. LISINOPRIL + HIDROCLOROTIAZIDA [Concomitant]
     Indication: HYPERTENSION
     Dosage: 12.5/10 MG
     Route: 065
  4. METOPROLOL [Concomitant]
     Indication: HYPERTENSION
     Dosage: 100 MG, BID
     Route: 065
  5. DIGOXIN [Concomitant]
     Indication: PRODUCT USED FOR UNKNOWN INDICATION
     Dosage: 0.125 MG, DAILY
     Route: 065
  6. METFORMIN [Concomitant]
     Indication: TYPE 2 DIABETES MELLITUS
     Dosage: 1000 MG, BID
     Route: 065
  7. WARFARIN [Concomitant]
     Indication: PRODUCT USED FOR UNKNOWN INDICATION
     Dosage: 2.5 MG DAILY 5 DAYS PER WEEK AND 5 MG DAILY 2 DAYS PER WEEK
     Route: 065
  8. INSULIN [Concomitant]
     Indication: TYPE 2 DIABETES MELLITUS
     Dosage: 90 IU, BID
     Route: 065
  9. SIMVASTATIN [Concomitant]
     Indication: HYPERLIPIDAEMIA
     Dosage: 40 MG, DAILY
     Route: 065
  10. DULOXETINE [Concomitant]
     Indication: MAJOR DEPRESSION
     Dosage: 60 MG, BID
     Route: 065

REACTIONS (2)
  - Sedation [Unknown]
  - Tardive dyskinesia [Recovering/Resolving]
